FAERS Safety Report 22195802 (Version 3)
Quarter: 2023Q2

REPORT INFORMATION
  Report Type: Spontaneous
  Country: SE (occurrence: SE)
  Receive Date: 20230411
  Receipt Date: 20230502
  Transmission Date: 20230722
  Serious: Yes (Death, Other)
  Sender: FDA-Public Use
  Company Number: SE-002147023-NVSC2019SE122202

PATIENT
  Sex: Female

DRUGS (8)
  1. FILGRASTIM [Suspect]
     Active Substance: FILGRASTIM
     Indication: Product used for unknown indication
     Dosage: UNK
     Route: 065
  2. TAMOXIFEN [Suspect]
     Active Substance: TAMOXIFEN
     Indication: Product used for unknown indication
     Dosage: UNK
     Route: 065
  3. FULVESTRANT [Suspect]
     Active Substance: FULVESTRANT
     Indication: Product used for unknown indication
     Dosage: UNK
     Route: 065
  4. IBANDRONATE SODIUM [Suspect]
     Active Substance: IBANDRONATE SODIUM
     Indication: Product used for unknown indication
     Dosage: UNK
     Route: 065
  5. CAPECITABINE [Suspect]
     Active Substance: CAPECITABINE
     Indication: Product used for unknown indication
     Dosage: UNK
     Route: 065
  6. LETROZOLE [Suspect]
     Active Substance: LETROZOLE
     Indication: Product used for unknown indication
     Dosage: UNK
     Route: 065
  7. IBANDRONIC ACID [Suspect]
     Active Substance: IBANDRONIC ACID
     Indication: Product used for unknown indication
     Dosage: UNK
     Route: 065
  8. DOXORUBICIN HYDROCHLORIDE [Concomitant]
     Active Substance: DOXORUBICIN HYDROCHLORIDE
     Indication: Product used for unknown indication
     Dosage: UNK
     Route: 065

REACTIONS (18)
  - Metastases to bone [Fatal]
  - Transaminases increased [Fatal]
  - Jaundice [Fatal]
  - Pelvic fracture [Fatal]
  - Platelet count abnormal [Fatal]
  - Blood bilirubin abnormal [Fatal]
  - Invasive ductal breast carcinoma [Fatal]
  - Tumour marker increased [Fatal]
  - Metastases to liver [Fatal]
  - Bone marrow disorder [Fatal]
  - Weight decreased [Fatal]
  - White blood cell count abnormal [Fatal]
  - Pain [Fatal]
  - Nausea [Fatal]
  - Back pain [Fatal]
  - Fatigue [Fatal]
  - Drug ineffective [Unknown]
  - Therapy non-responder [Unknown]
